FAERS Safety Report 4812906-X (Version None)
Quarter: 2005Q4

REPORT INFORMATION
  Report Type: 
  Country: None (occurrence: None)
  Receive Date: 20051028
  Receipt Date: 20041206
  Transmission Date: 20060501
  Serious: No
  Sender: FDA-Public Use
  Company Number: US-GLAXOSMITHKLINE-A0536554A

PATIENT
  Age: 43 Year
  Sex: Female

DRUGS (6)
  1. ADVAIR DISKUS 100/50 [Suspect]
     Indication: ASTHMA
     Dosage: 1PUFF TWICE PER DAY
     Route: 055
     Dates: start: 20030901, end: 20040701
  2. ADVAIR DISKUS 100/50 [Suspect]
     Dosage: 1PUFF TWICE PER DAY
     Route: 055
     Dates: start: 20040701, end: 20041129
  3. SYNTHROID [Concomitant]
  4. CLARINEX [Concomitant]
  5. NASONEX [Concomitant]
  6. AVAPRO [Concomitant]

REACTIONS (3)
  - DRUG INEFFECTIVE [None]
  - HEART RATE IRREGULAR [None]
  - HYPERTENSION [None]
